APPROVED DRUG PRODUCT: METHOTREXATE SODIUM
Active Ingredient: METHOTREXATE SODIUM
Strength: EQ 2.5MG BASE **Federal Register determination that product was not discontinued or withdrawn for safety or effectiveness reasons**
Dosage Form/Route: TABLET;ORAL
Application: N008085 | Product #002
Applicant: STRIDES PHARMA INTERNATIONAL AG
Approved: Approved Prior to Jan 1, 1982 | RLD: Yes | RS: No | Type: DISCN